FAERS Safety Report 17685116 (Version 1)
Quarter: 2020Q2

REPORT INFORMATION
  Report Type: Spontaneous
  Country: US (occurrence: US)
  Receive Date: 20200420
  Receipt Date: 20200420
  Transmission Date: 20200714
  Serious: Yes (Death)
  Sender: FDA-Public Use
  Company Number: US-ASTRAZENECA-2020SE52058

PATIENT
  Sex: Female

DRUGS (3)
  1. SYNAGIS [Suspect]
     Active Substance: PALIVIZUMAB
     Indication: CHRONIC RESPIRATORY DISEASE
     Route: 030
     Dates: start: 20191209
  2. SYNAGIS [Suspect]
     Active Substance: PALIVIZUMAB
     Indication: HEART DISEASE CONGENITAL
     Route: 030
     Dates: start: 20191209
  3. SYNAGIS [Suspect]
     Active Substance: PALIVIZUMAB
     Indication: CHRONIC RESPIRATORY FAILURE
     Route: 030
     Dates: start: 20191209

REACTIONS (2)
  - Death [Fatal]
  - Product use issue [Unknown]

NARRATIVE: CASE EVENT DATE: 20191209
